FAERS Safety Report 4916524-4 (Version None)
Quarter: 2006Q1

REPORT INFORMATION
  Report Type: 
  Country: None (occurrence: None)
  Receive Date: 20060220
  Receipt Date: 20060215
  Transmission Date: 20060701
  Serious: Yes (Death)
  Sender: FDA-Public Use
  Company Number: PHHO2006US02844

PATIENT
  Age: 74 Year
  Sex: Female
  Weight: 56.8 kg

DRUGS (20)
  1. ACLASTA (ZOLEDRONIC ACID) VS PLACEBO [Suspect]
     Indication: OSTEOPOROSIS POSTMENOPAUSAL
     Dosage: DOUBLE BLIND
     Route: 042
     Dates: start: 20060130
  2. CALCIUM GLUCONATE [Concomitant]
     Indication: OSTEOPOROSIS POSTMENOPAUSAL
  3. VITAMIN D [Concomitant]
     Indication: OSTEOPOROSIS POSTMENOPAUSAL
  4. COZAAR [Concomitant]
     Indication: HYPERTENSION
     Dosage: UNK, UNK
     Route: 048
     Dates: start: 20020101
  5. METHYLIN [Concomitant]
     Indication: ATTENTION DEFICIT/HYPERACTIVITY DISORDER
     Route: 048
  6. DITROPAN XL [Concomitant]
     Indication: HYPERTONIC BLADDER
  7. LESCOL [Concomitant]
     Indication: HYPERCHOLESTEROLAEMIA
  8. RITALIN [Concomitant]
     Indication: NARCOLEPSY
  9. PRILOSEC [Concomitant]
     Indication: OESOPHAGEAL ULCER
  10. VITAMIN E [Concomitant]
     Indication: VITAMIN SUPPLEMENTATION
  11. OXYBUTYN [Concomitant]
     Indication: HYPERTONIC BLADDER
  12. QUININE SULFATE [Concomitant]
     Indication: MUSCLE SPASMS
  13. MELATONIN [Concomitant]
  14. GINKGO BILOBA [Concomitant]
  15. EXCEDRIN (MIGRAINE) [Concomitant]
     Indication: HEADACHE
  16. PROCAL [Concomitant]
  17. DARVOCET-N 50 [Concomitant]
     Indication: PAIN IN EXTREMITY
  18. PREVACID [Concomitant]
     Indication: OESOPHAGEAL ULCER
  19. HYDROCHLOROTHIAZIDE [Concomitant]
  20. EVISTA [Concomitant]

REACTIONS (18)
  - BRAIN COMPRESSION [None]
  - BRAIN HERNIATION [None]
  - BRAIN SCAN ABNORMAL [None]
  - CARDIO-RESPIRATORY ARREST [None]
  - COMA [None]
  - CONVULSION [None]
  - DILATATION ATRIAL [None]
  - DISEASE PROGRESSION [None]
  - ENCEPHALOMALACIA [None]
  - HYDROCEPHALUS [None]
  - HYPERKALAEMIA [None]
  - INCONTINENCE [None]
  - LOSS OF CONSCIOUSNESS [None]
  - RESPIRATORY ARREST [None]
  - SINUS TACHYCARDIA [None]
  - SUBARACHNOID HAEMORRHAGE [None]
  - SUBDURAL HAEMATOMA [None]
  - WHITE BLOOD CELL COUNT INCREASED [None]
